FAERS Safety Report 10178290 (Version 1)
Quarter: 2014Q2

REPORT INFORMATION
  Report Type: Report from Study
  Country: US (occurrence: US)
  Receive Date: 20140519
  Receipt Date: 20140519
  Transmission Date: 20141212
  Serious: Yes (Hospitalization)
  Sender: FDA-Public Use
  Company Number: US-ROCHE-1397603

PATIENT
  Sex: Female

DRUGS (4)
  1. PEGASYS [Suspect]
     Indication: CHRONIC HEPATITIS C
     Dosage: 12 WEEK LENGTH THERAPY
     Route: 058
     Dates: start: 20140506
  2. SOVALDI [Suspect]
     Indication: CHRONIC HEPATITIS C
     Dosage: 12 WEEK LENGTH THERAPY
     Route: 065
     Dates: start: 20140506
  3. RIBASPHERE [Suspect]
     Indication: CHRONIC HEPATITIS C
     Dosage: DIVIDED DOSES OF 600/400 FOR 12 WEEK LENGTH THERAPY
     Route: 048
     Dates: start: 20140506
  4. CYMBALTA [Concomitant]
     Dosage: FREQUENCY PRESCRIBED 2 TIMES A DAY.
     Route: 065

REACTIONS (4)
  - Dehydration [Unknown]
  - Hypotension [Unknown]
  - Insomnia [Unknown]
  - Anxiety [Unknown]
